FAERS Safety Report 22031530 (Version 1)
Quarter: 2023Q1

REPORT INFORMATION
  Report Type: Spontaneous
  Country: AR (occurrence: AR)
  Receive Date: 20230224
  Receipt Date: 20230224
  Transmission Date: 20230417
  Serious: Yes (Other)
  Sender: FDA-Public Use
  Company Number: AR-ALKEM LABORATORIES LIMITED-AR-ALKEM-2022-04879

PATIENT
  Age: 27 Year
  Sex: Male

DRUGS (3)
  1. FINASTERIDE [Suspect]
     Active Substance: FINASTERIDE
     Indication: Androgenetic alopecia
     Dosage: 1 MILLIGRAM, QD PER DAY
     Route: 065
     Dates: start: 201401
  2. FINASTERIDE [Suspect]
     Active Substance: FINASTERIDE
     Dosage: 1 MILLIGRAM, QD PER DAY
     Route: 065
     Dates: start: 201407
  3. FINASTERIDE [Suspect]
     Active Substance: FINASTERIDE
     Dosage: UNK
     Route: 065
     Dates: start: 201409

REACTIONS (6)
  - Erectile dysfunction [Recovered/Resolved]
  - Dyspepsia [Recovered/Resolved]
  - Libido decreased [Recovered/Resolved]
  - Hypospermia [Recovered/Resolved]
  - Muscle hypertrophy [Recovered/Resolved]
  - Penile size reduced [Recovered/Resolved]
